FAERS Safety Report 5029139-7 (Version None)
Quarter: 2006Q2

REPORT INFORMATION
  Report Type: 
  Country: None (occurrence: None)
  Receive Date: 20060615
  Receipt Date: 20060615
  Transmission Date: 20061013
  Serious: Yes (Hospitalization)
  Sender: FDA-Public Use
  Company Number: None

PATIENT
  Age: 52 Year
  Sex: Female
  Weight: 90.8 kg

DRUGS (8)
  1. ADRIAMYCIN [Suspect]
     Indication: BREAST CANCER
     Dosage: 117 MG EVERY 2 WEEKS IV
     Route: 042
     Dates: start: 20060510, end: 20060607
  2. CYTOXAN [Suspect]
     Indication: BREAST CANCER
     Dosage: 1170 MG EVERY 2 WEEKS IV
     Route: 042
     Dates: start: 20060510, end: 20060607
  3. ATIVAN [Concomitant]
  4. COMPAZINE [Concomitant]
  5. DECADRON [Concomitant]
  6. NEULASTA [Concomitant]
  7. ZOFRAN [Concomitant]
  8. REGLAN [Concomitant]

REACTIONS (5)
  - DEHYDRATION [None]
  - DIARRHOEA [None]
  - MALAISE [None]
  - NAUSEA [None]
  - VOMITING [None]
